FAERS Safety Report 10208703 (Version 1)
Quarter: 2014Q2

REPORT INFORMATION
  Report Type: Spontaneous
  Country: CH (occurrence: CH)
  Receive Date: 20140530
  Receipt Date: 20140530
  Transmission Date: 20141212
  Serious: Yes (Other)
  Sender: FDA-Public Use
  Company Number: CH-WATSON-2014-11662

PATIENT
  Sex: Female

DRUGS (3)
  1. DEXAMETHASONE (UNKNOWN) [Suspect]
     Indication: PROPHYLAXIS
     Dosage: 0.5 MG, TID
     Route: 064
  2. HYDROCORTISONE [Concomitant]
     Indication: PRODUCT USED FOR UNKNOWN INDICATION
     Dosage: 12-18 MG/M?/DAY GIVEN IN THREE DOSES
     Route: 065
  3. FLUDROCORTISONE [Concomitant]
     Indication: PRODUCT USED FOR UNKNOWN INDICATION
     Route: 065

REACTIONS (5)
  - Convulsion [Recovered/Resolved]
  - Brain oedema [Unknown]
  - Central nervous system lesion [Unknown]
  - Foetal growth restriction [Recovered/Resolved]
  - Foetal exposure during pregnancy [Unknown]
